FAERS Safety Report 8043716-0 (Version None)
Quarter: 2012Q1

REPORT INFORMATION
  Report Type: 
  Country: None (occurrence: None)
  Receive Date: 20120113
  Receipt Date: 20120104
  Transmission Date: 20120608
  Serious: Yes (Life-Threatening, Disabling, Other)
  Sender: FDA-Public Use
  Company Number: SA-BRISTOL-MYERS SQUIBB COMPANY-16203374

PATIENT
  Sex: Male

DRUGS (5)
  1. LOPERAMIDE [Suspect]
     Route: 048
  2. REPAGLINIDE [Concomitant]
  3. GLUCOVANCE [Suspect]
     Route: 048
  4. ZOCOR [Suspect]
  5. GLYBURIDE [Concomitant]

REACTIONS (2)
  - HAEMOLYTIC ANAEMIA [None]
  - GASTROINTESTINAL DISORDER [None]
